FAERS Safety Report 18837261 (Version 1)
Quarter: 2021Q1

REPORT INFORMATION
  Report Type: Spontaneous
  Country: US (occurrence: US)
  Receive Date: 20210203
  Receipt Date: 20210203
  Transmission Date: 20210419
  Serious: No
  Sender: FDA-Public Use
  Company Number: US-ALLERGAN-2029153US

PATIENT
  Sex: Female

DRUGS (5)
  1. BOTOX [Suspect]
     Active Substance: ONABOTULINUMTOXINA
     Indication: MIGRAINE
     Dosage: UNK UNK, SINGLE
     Dates: start: 20200526, end: 20200526
  2. BOTOX [Suspect]
     Active Substance: ONABOTULINUMTOXINA
     Dosage: UNK UNK, SINGLE
     Dates: start: 20200526, end: 20200526
  3. BOTOX [Suspect]
     Active Substance: ONABOTULINUMTOXINA
     Dosage: UNK UNK, SINGLE
     Dates: start: 20200526, end: 20200526
  4. BOTOX [Suspect]
     Active Substance: ONABOTULINUMTOXINA
     Dosage: UNK UNK, SINGLE
     Dates: start: 20200526, end: 20200526
  5. BOTOX [Suspect]
     Active Substance: ONABOTULINUMTOXINA
     Dosage: UNK UNK, SINGLE
     Dates: start: 20200526, end: 20200526

REACTIONS (9)
  - Headache [Recovering/Resolving]
  - Hypoaesthesia [Recovering/Resolving]
  - Head discomfort [Recovering/Resolving]
  - Pharyngeal hypoaesthesia [Recovering/Resolving]
  - Dysphagia [Recovering/Resolving]
  - Foreign body in throat [Recovering/Resolving]
  - Musculoskeletal stiffness [Recovering/Resolving]
  - Retching [Recovering/Resolving]
  - Cough [Recovering/Resolving]

NARRATIVE: CASE EVENT DATE: 2020
